FAERS Safety Report 25383372 (Version 1)
Quarter: 2025Q2

REPORT INFORMATION
  Report Type: Spontaneous
  Country: SK (occurrence: SK)
  Receive Date: 20250602
  Receipt Date: 20250602
  Transmission Date: 20250716
  Serious: Yes (Other)
  Sender: NOVARTIS
  Company Number: SK-002147023-NVSC2025SK087397

PATIENT
  Sex: Female

DRUGS (1)
  1. GILENYA [Suspect]
     Active Substance: FINGOLIMOD HYDROCHLORIDE
     Indication: Multiple sclerosis
     Route: 065

REACTIONS (3)
  - Hypogammaglobulinaemia [Unknown]
  - Respiratory tract inflammation [Unknown]
  - Urinary tract inflammation [Unknown]

NARRATIVE: CASE EVENT DATE: 20241112
